FAERS Safety Report 6869682-9 (Version None)
Quarter: 2010Q3

REPORT INFORMATION
  Report Type: 
  Country: None (occurrence: None)
  Receive Date: 20100721
  Receipt Date: 20100705
  Transmission Date: 20110219
  Serious: Yes (Hospitalization)
  Sender: FDA-Public Use
  Company Number: 7009237

PATIENT
  Age: 37 Year
  Sex: Female

DRUGS (1)
  1. REBIF [Suspect]
     Indication: MULTIPLE SCLEROSIS
     Dosage: 44 MCG, SUBCUTANEOUS
     Route: 058
     Dates: start: 20080725, end: 20090701

REACTIONS (9)
  - DIZZINESS [None]
  - HEPATOTOXICITY [None]
  - MALAISE [None]
  - NAUSEA [None]
  - PARAESTHESIA [None]
  - RASH MACULO-PAPULAR [None]
  - VERTIGO [None]
  - VISUAL ACUITY REDUCED [None]
  - VISUAL IMPAIRMENT [None]
